FAERS Safety Report 6035660-5 (Version None)
Quarter: 2009Q1

REPORT INFORMATION
  Report Type: 
  Country: None (occurrence: None)
  Receive Date: 20090113
  Receipt Date: 20090108
  Transmission Date: 20090719
  Serious: Yes (Death)
  Sender: FDA-Public Use
  Company Number: PHHY2008JP18750

PATIENT
  Sex: Male

DRUGS (1)
  1. EXJADE [Suspect]
     Indication: ACUTE MYELOID LEUKAEMIA
     Dosage: 1000 MG DAILY
     Route: 048
     Dates: start: 20080725

REACTIONS (3)
  - ACUTE MYELOID LEUKAEMIA [None]
  - ASPERGILLOSIS [None]
  - DISSEMINATED INTRAVASCULAR COAGULATION [None]
